FAERS Safety Report 16094761 (Version 1)
Quarter: 2019Q1

REPORT INFORMATION
  Report Type: Spontaneous
  Country: US (occurrence: US)
  Receive Date: 20190320
  Receipt Date: 20190320
  Transmission Date: 20190418
  Serious: Yes (Hospitalization, Other)
  Sender: FDA-Public Use
  Company Number: US-PFIZER INC-2019120716

PATIENT
  Age: 70 Year
  Sex: Male
  Weight: 62 kg

DRUGS (1)
  1. RAPAMUNE [Suspect]
     Active Substance: SIROLIMUS
     Indication: RENAL TRANSPLANT
     Dosage: 1 MG, DAILY
     Route: 048
     Dates: start: 2007, end: 20190222

REACTIONS (11)
  - Dependence on oxygen therapy [Unknown]
  - Cardiac failure [Unknown]
  - Pulmonary hypertension [Unknown]
  - Speech disorder [Unknown]
  - Drug level increased [Recovered/Resolved]
  - Cardiac disorder [Recovering/Resolving]
  - Fluid retention [Recovered/Resolved]
  - Arteriosclerosis [Unknown]
  - Hypokinesia [Unknown]
  - Gait disturbance [Unknown]
  - Dyspnoea [Unknown]
